FAERS Safety Report 9314258 (Version 1)
Quarter: 2013Q2

REPORT INFORMATION
  Report Type: Spontaneous
  Country: CA (occurrence: CA)
  Receive Date: 20130529
  Receipt Date: 20130529
  Transmission Date: 20140414
  Serious: Yes (Other)
  Sender: FDA-Public Use
  Company Number: PHHY2013CA053385

PATIENT
  Sex: Female

DRUGS (3)
  1. NEORAL [Suspect]
     Dosage: 500 MG, 10 TIMES HER DOSE
  2. NEORAL [Suspect]
     Dosage: 250 MG, 5 TIMES HER DOSE
  3. NEORAL [Suspect]
     Dosage: 1 DF, 5 TIMES

REACTIONS (3)
  - Dementia [Unknown]
  - Overdose [Unknown]
  - Incorrect dose administered [Unknown]
